FAERS Safety Report 6151172-2 (Version None)
Quarter: 2009Q2

REPORT INFORMATION
  Report Type: 
  Country: None (occurrence: None)
  Receive Date: 20090410
  Receipt Date: 20071121
  Transmission Date: 20091009
  Serious: Yes (Death, Hospitalization)
  Sender: FDA-Public Use
  Company Number: US-ASTRAZENECA-2006UW21589

PATIENT
  Age: 13847 Day
  Sex: Female
  Weight: 125.2 kg

DRUGS (35)
  1. SEROQUEL [Suspect]
     Indication: DEPRESSION
     Route: 048
     Dates: start: 19960601
  2. SEROQUEL [Suspect]
     Dosage: 25-400MG
     Route: 048
  3. CLOZARIL [Concomitant]
     Dates: start: 19940101
  4. HALDOL [Concomitant]
     Dates: start: 19940101, end: 20050101
  5. ZOLOFT [Concomitant]
  6. PAXIL [Concomitant]
  7. CLOZAPINE [Concomitant]
  8. NORVASC [Concomitant]
     Dates: start: 20010517
  9. LIPITOR [Concomitant]
     Dates: start: 20010430
  10. ESKALITH [Concomitant]
     Dates: start: 20020326
  11. LISINOPRIL [Concomitant]
  12. SINGULAIR [Concomitant]
     Dates: start: 20031103
  13. ALBUTEROL [Concomitant]
     Dates: start: 20011109
  14. WELLBUTRIN [Concomitant]
  15. TEMAZEPAM [Concomitant]
     Dates: start: 20010409
  16. RISPERDAL [Concomitant]
  17. KLONOPIN [Concomitant]
     Dates: start: 20020328
  18. LOXITANE [Concomitant]
     Dates: start: 20020326
  19. SYNTHROID [Concomitant]
     Dates: start: 20030822
  20. TRAZODONE HCL [Concomitant]
  21. GLUCOTROL [Concomitant]
  22. EFFEXOR [Concomitant]
  23. RITALIN [Concomitant]
     Dates: start: 20010109
  24. HYDROCHLOROTHIAZIDE [Concomitant]
     Dates: start: 20010517
  25. METFORMIN HCL [Concomitant]
  26. SPIRONOLACTONE [Concomitant]
  27. COMBIVENT [Concomitant]
  28. SEREVENT [Concomitant]
     Dates: start: 20000914
  29. FLEXERIL [Concomitant]
     Dates: start: 20000831
  30. DARVOCET [Concomitant]
     Dates: start: 20000831
  31. RHINOCORT [Concomitant]
  32. FLOVENT [Concomitant]
  33. CLARITIN [Concomitant]
     Dates: start: 20010705
  34. PREVACID [Concomitant]
  35. ACETAMINOPHEN [Concomitant]
     Dates: start: 20020315

REACTIONS (12)
  - ASTHMA [None]
  - BIPOLAR DISORDER [None]
  - DIABETES MELLITUS [None]
  - HALLUCINATION, AUDITORY [None]
  - HYPERTENSIVE HEART DISEASE [None]
  - INSOMNIA [None]
  - MULTIPLE DRUG OVERDOSE INTENTIONAL [None]
  - OBESITY [None]
  - OEDEMA PERIPHERAL [None]
  - POST-TRAUMATIC STRESS DISORDER [None]
  - SCHIZOPHRENIA [None]
  - SUICIDAL IDEATION [None]
